FAERS Safety Report 4528893-8 (Version None)
Quarter: 2004Q4

REPORT INFORMATION
  Report Type: 
  Country: None (occurrence: None)
  Receive Date: 20041214
  Receipt Date: 20041202
  Transmission Date: 20050328
  Serious: Yes (Other)
  Sender: FDA-Public Use
  Company Number: HQWYE712401DEC04

PATIENT
  Age: 6 Year
  Sex: Female

DRUGS (1)
  1. CHILDREN'S ADVIL [Suspect]
     Indication: VARICELLA
     Route: 048

REACTIONS (4)
  - ENCEPHALOPATHY [None]
  - EPILEPSY [None]
  - FATIGUE [None]
  - MOTOR DYSFUNCTION [None]
